FAERS Safety Report 11209123 (Version 1)
Quarter: 2015Q2

REPORT INFORMATION
  Report Type: Spontaneous
  Country: BR (occurrence: BR)
  Receive Date: 20150622
  Receipt Date: 20150622
  Transmission Date: 20150821
  Serious: Yes (Other)
  Sender: FDA-Public Use
  Company Number: PHHY2015BR071940

PATIENT
  Age: 8 Year
  Sex: Male

DRUGS (1)
  1. WARFARIN [Suspect]
     Active Substance: WARFARIN
     Indication: CARDIAC VALVE DISEASE
     Route: 064

REACTIONS (24)
  - Pectus excavatum [Unknown]
  - Snoring [Unknown]
  - Hypertrophy [Unknown]
  - Dysphonia [Unknown]
  - Foetal exposure during pregnancy [Unknown]
  - Foetal warfarin syndrome [Unknown]
  - Bradycardia [Unknown]
  - Obstruction [Unknown]
  - Dyspnoea [Unknown]
  - Micrognathia [Unknown]
  - Dental caries [Unknown]
  - Respiratory depression [Unknown]
  - Cyanosis [Unknown]
  - Clubbing [Unknown]
  - Sinusitis [Unknown]
  - Premature baby [Unknown]
  - Hearing impaired [Unknown]
  - Respiratory distress [Unknown]
  - Gingival swelling [Unknown]
  - Mouth breathing [Unknown]
  - Choanal atresia [Unknown]
  - Apnoea [Unknown]
  - Hypoplastic nasal cartilage [Unknown]
  - Congenital skin dimples [Unknown]
